FAERS Safety Report 8405771-5 (Version None)
Quarter: 2012Q2

REPORT INFORMATION
  Report Type: 
  Country: None (occurrence: None)
  Receive Date: 20120529
  Receipt Date: 20061220
  Transmission Date: 20120825
  Serious: Yes (Hospitalization)
  Sender: FDA-Public Use
  Company Number: 02100-JPN-07-0009

PATIENT
  Age: 62 Year
  Sex: Male

DRUGS (19)
  1. ASPIRIN [Suspect]
     Indication: ANGINA PECTORIS
     Dosage: 100 MG, BID, ORAL
     Route: 048
     Dates: start: 20061209, end: 20061215
  2. LEBENIN (LACTOBACILLUS ACIDOPHILUS, LACTOBACILLUS BIFIDUS, LYOPHILIZED [Concomitant]
  3. PLETAL [Suspect]
     Dosage: ORAL
     Route: 048
     Dates: start: 20061216
  4. MAGMITT (MAGNESIUM OXIDE) [Concomitant]
  5. YUNASUPIN (SULBACTAM SODIUM_AMPICILLIN SODIUM) [Concomitant]
  6. PRAVATIN (PRAVASTATIN SODIUM) [Concomitant]
  7. ALLOID G (SODIUM ALIGINATE) [Concomitant]
  8. MUCOSTA (REBAMIPIDE) [Concomitant]
  9. SELBEX (TEPRENONE) [Concomitant]
  10. ANPLAG (SARPOGRELATE HYDROCHLORIDE) [Concomitant]
  11. OMEPRAZOLE [Concomitant]
  12. MAALOX (MAGNESIUM HYDROXIDE, ALUMINIUM HYDROXIDE GEL) [Concomitant]
  13. LANSOPRAZOLE [Concomitant]
  14. CLEITON (HYDROCORTISONE SODIUM PHOSPHATE) [Concomitant]
  15. MILLISROL (GYCERYL TRINITRATE) [Concomitant]
  16. DIOVAN [Concomitant]
  17. HANP (CARPERITIDE) [Concomitant]
  18. PARIET (SODIUM RABEPRAZOLE) [Concomitant]
  19. CAPTORIL (CAPTOPRIL) [Concomitant]

REACTIONS (3)
  - ERYTHEMA MULTIFORME [None]
  - CHEST DISCOMFORT [None]
  - DEPRESSED LEVEL OF CONSCIOUSNESS [None]
